FAERS Safety Report 9869179 (Version 5)
Quarter: 2014Q2

REPORT INFORMATION
  Report Type: Report from Study
  Country: US (occurrence: US)
  Receive Date: 20140205
  Receipt Date: 20140516
  Transmission Date: 20141212
  Serious: Yes (Death, Hospitalization)
  Sender: FDA-Public Use
  Company Number: US-BRISTOL-MYERS SQUIBB COMPANY-19950385

PATIENT
  Age: 44 Year
  Sex: Male
  Weight: 89.5 kg

DRUGS (1)
  1. IPILIMUMAB [Suspect]
     Indication: MALIGNANT MELANOMA
     Dosage: 895MG-TOTAL
     Route: 042
     Dates: start: 20131003, end: 20131205

REACTIONS (6)
  - Pulmonary haemorrhage [Fatal]
  - Alanine aminotransferase increased [Recovering/Resolving]
  - Aspartate aminotransferase increased [Recovering/Resolving]
  - Lung infection [Recovering/Resolving]
  - Pneumothorax [Not Recovered/Not Resolved]
  - Bronchopleural fistula [Not Recovered/Not Resolved]
